FAERS Safety Report 9656894 (Version 1)
Quarter: 2013Q4

REPORT INFORMATION
  Report Type: Spontaneous
  Country: US (occurrence: US)
  Receive Date: 20131030
  Receipt Date: 20131030
  Transmission Date: 20140711
  Serious: Yes (Other)
  Sender: FDA-Public Use
  Company Number: US-AMGEN-USASP2013075643

PATIENT
  Age: 74 Year
  Sex: Female

DRUGS (8)
  1. PROLIA [Suspect]
     Indication: PRODUCT USED FOR UNKNOWN INDICATION
     Dosage: UNK
     Route: 065
     Dates: start: 20130313
  2. COUMADIN                           /00014802/ [Concomitant]
     Indication: COAGULOPATHY
  3. XARELTO [Concomitant]
     Indication: COAGULOPATHY
  4. FOLTX [Concomitant]
  5. TRICOR                             /00090101/ [Concomitant]
  6. ULTRACET [Concomitant]
  7. MAGNESIUM OXIDE [Concomitant]
  8. FENOFIBRATE [Concomitant]
     Dosage: 160 MG, UNK

REACTIONS (8)
  - Spinal column stenosis [Unknown]
  - Paraesthesia [Not Recovered/Not Resolved]
  - Sleep disorder [Unknown]
  - Musculoskeletal stiffness [Unknown]
  - Mobility decreased [Unknown]
  - Pain [Unknown]
  - Back pain [Unknown]
  - Pain in extremity [Not Recovered/Not Resolved]
